FAERS Safety Report 6594197-5 (Version None)
Quarter: 2010Q1

REPORT INFORMATION
  Report Type: 
  Country: None (occurrence: None)
  Receive Date: 20100222
  Receipt Date: 20100220
  Transmission Date: 20100710
  Serious: Yes (Death, Other)
  Sender: FDA-Public Use
  Company Number: CN-ROCHE-686198

PATIENT
  Sex: Male

DRUGS (2)
  1. MYCOPHENOLATE MOFETIL [Suspect]
     Indication: RENAL TRANSPLANT
     Dosage: DOSAGE WAS UNKNOWN
     Route: 048
     Dates: start: 20050811
  2. PROGRAF [Concomitant]
     Indication: RENAL TRANSPLANT
     Dosage: DRUG STRENGTH: 1MG AND 0.5MG, DOSAGE WAS UNKNOWN
     Route: 048
     Dates: start: 20050811

REACTIONS (2)
  - BLOOD CREATININE INCREASED [None]
  - DEATH [None]
